FAERS Safety Report 19056348 (Version 1)
Quarter: 2021Q1

REPORT INFORMATION
  Report Type: Report from Study
  Country: ZA (occurrence: ZA)
  Receive Date: 20210324
  Receipt Date: 20210324
  Transmission Date: 20210420
  Serious: Yes (Other)
  Sender: FDA-Public Use
  Company Number: NVSC2021ZA062304

PATIENT
  Sex: Female

DRUGS (1)
  1. CO?TAREG [Suspect]
     Active Substance: HYDROCHLOROTHIAZIDE\VALSARTAN
     Indication: CARDIAC FAILURE
     Dosage: 160 MG
     Route: 048

REACTIONS (8)
  - Dyspnoea [Unknown]
  - Orthopnoea [Unknown]
  - Peripheral swelling [Unknown]
  - Joint swelling [Unknown]
  - Abdominal distension [Unknown]
  - Product use in unapproved indication [Unknown]
  - Cardiac failure [Unknown]
  - Fatigue [Unknown]
